FAERS Safety Report 7307592-3 (Version None)
Quarter: 2011Q1

REPORT INFORMATION
  Report Type: 
  Country: None (occurrence: None)
  Receive Date: 20110223
  Receipt Date: 20110211
  Transmission Date: 20110831
  Serious: Yes (Other)
  Sender: FDA-Public Use
  Company Number: ZA-SANOFI-AVENTIS-2011SA008816

PATIENT
  Age: 40 Year
  Sex: Female

DRUGS (2)
  1. PREDNISONE [Concomitant]
     Indication: BRONCHITIS
     Route: 048
     Dates: start: 20110129
  2. KETEK [Suspect]
     Indication: BRONCHITIS
     Route: 048
     Dates: start: 20110129

REACTIONS (2)
  - AGITATION [None]
  - PSYCHOTIC DISORDER [None]
